FAERS Safety Report 8615206 (Version 2)
Quarter: 2014Q1

REPORT INFORMATION
  Report Type: Spontaneous
  Country: US (occurrence: None)
  Receive Date: 20120323
  Receipt Date: 20130305
  Transmission Date: 20141002
  Serious: Yes (Other)
  Sender: FDA-Public Use
  Company Number: 163-21880-11112665

PATIENT
  Age: 79 Year
  Sex: Male

DRUGS (5)
  1. REVLIMID [Suspect]
     Indication: PLASMA CELL MYELOMA
     Dosage: 25 MG, QD FOR 21 DAYS, PO
     Route: 048
     Dates: start: 201106, end: 201205
  2. COUMADIN (WARFARIN SODIUM) [Concomitant]
  3. ASPIRIN (ACETYLSALICYLIC ACID) [Concomitant]
  4. BYSTOLIC (NEBIVOLOL HYDROCHLORIDE) [Concomitant]
  5. DIOVAN (VALSARTAN) [Concomitant]

REACTIONS (6)
  - Thrombosis [None]
  - Deep vein thrombosis [None]
  - Hypoaesthesia [None]
  - Oedema peripheral [None]
  - Platelet count decreased [None]
  - Thrombosis [None]
